FAERS Safety Report 7981636-8 (Version None)
Quarter: 2011Q4

REPORT INFORMATION
  Report Type: 
  Country: None (occurrence: None)
  Receive Date: 20111215
  Receipt Date: 20111209
  Transmission Date: 20120403
  Serious: Yes (Death, Other)
  Sender: FDA-Public Use
  Company Number: JP-BRISTOL-MYERS SQUIBB COMPANY-16260614

PATIENT
  Age: 76 Year
  Sex: Male
  Weight: 48 kg

DRUGS (3)
  1. TS-1 [Suspect]
     Indication: RECTAL CANCER
     Route: 048
     Dates: start: 20111012, end: 20111115
  2. ERBITUX [Suspect]
     Indication: RECTAL CANCER
     Dosage: DOSE REDUCED TO 250MG/M2. 19OCT11-16NOV11 370MG(DOSE REDUCED)
     Route: 042
     Dates: start: 20111012, end: 20111012
  3. CAMPTOSAR [Suspect]
     Indication: RECTAL CANCER
     Route: 042
     Dates: start: 20111012, end: 20111102

REACTIONS (4)
  - ACUTE RESPIRATORY FAILURE [None]
  - DIARRHOEA [None]
  - CIRCULATORY COLLAPSE [None]
  - NASOPHARYNGITIS [None]
